FAERS Safety Report 7421802-3 (Version None)
Quarter: 2011Q2

REPORT INFORMATION
  Report Type: 
  Country: None (occurrence: None)
  Receive Date: 20110407
  Receipt Date: 20110328
  Transmission Date: 20111010
  Serious: Yes (Death)
  Sender: FDA-Public Use
  Company Number: UTC-005382

PATIENT
  Age: 77 Year
  Sex: Female
  Weight: 53.36 kg

DRUGS (3)
  1. COUMADIN [Concomitant]
  2. REMODULIN [Suspect]
     Dosage: 59.04 UG/KG (0.041 UG/KG, 1 IN 1 MIN), INTRAVENOUS
     Route: 042
     Dates: start: 20100129
  3. DIURETICS (DIURETICS) [Concomitant]

REACTIONS (1)
  - DEATH [None]
